FAERS Safety Report 11055168 (Version 1)
Quarter: 2015Q2

REPORT INFORMATION
  Report Type: Spontaneous
  Country: US (occurrence: None)
  Receive Date: 20150421
  Receipt Date: 20150421
  Transmission Date: 20150821
  Serious: Yes (Other)
  Sender: FDA-Public Use
  Company Number: None

PATIENT
  Age: 28 Year
  Sex: Female
  Weight: 48.99 kg

DRUGS (2)
  1. SO MANY OTHER BEAUTY PRODUCTS NIVEA, AVEENO, BATHANDBODY WORKS ETC [Suspect]
     Active Substance: COSMETICS
  2. NEUTROGENA OIL FREE ACNE WASH [Suspect]
     Active Substance: SALICYLIC ACID
     Indication: INFECTION PROPHYLAXIS
     Dates: start: 20150419, end: 20150419

REACTIONS (3)
  - Expired product administered [None]
  - Burning sensation [None]
  - Pruritus [None]

NARRATIVE: CASE EVENT DATE: 20150420
